FAERS Safety Report 5776023-7 (Version None)
Quarter: 2008Q2

REPORT INFORMATION
  Report Type: 
  Country: None (occurrence: None)
  Receive Date: 20080617
  Receipt Date: 20080606
  Transmission Date: 20081010
  Serious: Yes (Other)
  Sender: FDA-Public Use
  Company Number: GB-MERCK-0805GBR00098

PATIENT
  Age: 89 Year
  Sex: Male

DRUGS (3)
  1. TIMOPTIC [Suspect]
     Indication: KERATITIS
     Route: 047
     Dates: start: 20030601, end: 20030101
  2. TIMOPTIC [Suspect]
     Indication: KERATITIS HERPETIC
     Route: 047
     Dates: start: 20030601, end: 20030101
  3. PREDNISOLONE [Concomitant]
     Route: 065

REACTIONS (1)
  - CORNEAL DEPOSITS [None]
